FAERS Safety Report 21184091 (Version 1)
Quarter: 2022Q3

REPORT INFORMATION
  Report Type: Report from Study
  Country: JP (occurrence: JP)
  Receive Date: 20220808
  Receipt Date: 20220808
  Transmission Date: 20221027
  Serious: Yes (Other)
  Sender: FDA-Public Use
  Company Number: JP-AUROBINDO-AUR-APL-2021-049151

PATIENT
  Age: 78 Year
  Sex: Male
  Weight: 66 kg

DRUGS (26)
  1. FOLOTYN [Suspect]
     Active Substance: PRALATREXATE
     Indication: Peripheral T-cell lymphoma unspecified
     Dosage: UNK
     Route: 042
  2. FOLOTYN [Suspect]
     Active Substance: PRALATREXATE
     Dosage: 23 MILLIGRAM/SQ. METER, ONCE A DAY
     Route: 042
     Dates: start: 20210622, end: 20210622
  3. FOLOTYN [Suspect]
     Active Substance: PRALATREXATE
     Dosage: 30 MILLIGRAM/SQ. METER, ONCE A DAY
     Route: 042
     Dates: start: 20210629, end: 20210629
  4. FOLOTYN [Suspect]
     Active Substance: PRALATREXATE
     Dosage: 30 MILLIGRAM/SQ. METER, ONCE A DAY
     Route: 042
     Dates: start: 20210706, end: 20210706
  5. FOLOTYN [Suspect]
     Active Substance: PRALATREXATE
     Dosage: 23 MILLIGRAM/SQ. METER, ONCE A DAY
     Route: 042
     Dates: start: 20210720, end: 20210720
  6. FOLOTYN [Suspect]
     Active Substance: PRALATREXATE
     Dosage: 23 MILLIGRAM/SQ. METER, ONCE A DAY
     Route: 042
     Dates: start: 20210727, end: 20210727
  7. FOLOTYN [Suspect]
     Active Substance: PRALATREXATE
     Dosage: 23 MILLIGRAM/SQ. METER, ONCE A DAY
     Route: 042
     Dates: start: 20210803, end: 20210803
  8. FOLOTYN [Suspect]
     Active Substance: PRALATREXATE
     Dosage: 23 MILLIGRAM/SQ. METER, ONCE A DAY
     Route: 042
     Dates: start: 20210817, end: 20210817
  9. FOLOTYN [Suspect]
     Active Substance: PRALATREXATE
     Dosage: 23 MILLIGRAM/SQ. METER, ONCE A DAY
     Route: 042
     Dates: start: 20210824, end: 20210824
  10. FOLOTYN [Suspect]
     Active Substance: PRALATREXATE
     Dosage: 23 MILLIGRAM/SQ. METER, ONCE A DAY
     Route: 042
     Dates: start: 20210831, end: 20210831
  11. FOLOTYN [Suspect]
     Active Substance: PRALATREXATE
     Dosage: 23 MILLIGRAM/SQ. METER, ONCE A DAY
     Route: 042
     Dates: start: 20210907, end: 20210907
  12. FOLOTYN [Suspect]
     Active Substance: PRALATREXATE
     Dosage: 23 MILLIGRAM/SQ. METER, ONCE A DAY
     Route: 042
     Dates: start: 20210914, end: 20210914
  13. FOLOTYN [Suspect]
     Active Substance: PRALATREXATE
     Dosage: 23 MILLIGRAM/SQ. METER, ONCE A DAY
     Route: 042
     Dates: start: 20210921
  14. FOLOTYN [Suspect]
     Active Substance: PRALATREXATE
     Dosage: 30 MILLIGRAM/SQ. METER
     Route: 042
     Dates: start: 20211005
  15. FOLOTYN [Suspect]
     Active Substance: PRALATREXATE
     Dosage: 30 MILLIGRAM/SQ. METER
     Route: 042
     Dates: start: 20211012
  16. FOLOTYN [Suspect]
     Active Substance: PRALATREXATE
     Dosage: 30 MILLIGRAM/SQ. METER
     Route: 042
     Dates: start: 20211019
  17. FOLOTYN [Suspect]
     Active Substance: PRALATREXATE
     Dosage: 30 MILLIGRAM/SQ. METER
     Route: 042
     Dates: start: 20211102
  18. FOLOTYN [Suspect]
     Active Substance: PRALATREXATE
     Dosage: 30 MILLIGRAM/SQ. METER
     Route: 042
     Dates: start: 20211116
  19. FOLOTYN [Suspect]
     Active Substance: PRALATREXATE
     Dosage: 30 MILLIGRAM/SQ. METER
     Route: 042
     Dates: start: 20211130
  20. FOLOTYN [Suspect]
     Active Substance: PRALATREXATE
     Dosage: 30 MILLIGRAM/SQ. METER
     Route: 042
     Dates: start: 20211207
  21. FOLOTYN [Suspect]
     Active Substance: PRALATREXATE
     Dosage: 30 MILLIGRAM/SQ. METER
     Route: 042
     Dates: start: 20211214
  22. FOLOTYN [Suspect]
     Active Substance: PRALATREXATE
     Dosage: 30 MILLIGRAM/SQ. METER
     Route: 042
     Dates: start: 20211221
  23. FOLOTYN [Suspect]
     Active Substance: PRALATREXATE
     Dosage: 30 MILLIGRAM/SQ. METER
     Route: 042
     Dates: start: 20211228
  24. FOLIC ACID [Concomitant]
     Active Substance: FOLIC ACID
     Indication: Product used for unknown indication
     Dosage: UNK
     Route: 065
     Dates: end: 20220125
  25. VITAMIN B12 [Concomitant]
     Active Substance: CYANOCOBALAMIN
     Indication: Product used for unknown indication
     Dosage: UNK
     Route: 065
     Dates: end: 20211207
  26. PREDNISOLONE [Concomitant]
     Active Substance: PREDNISOLONE
     Indication: Product used for unknown indication
     Dosage: UNK
     Route: 065

REACTIONS (3)
  - Neuropathy peripheral [Not Recovered/Not Resolved]
  - Stomatitis [Recovered/Resolved]
  - Cheilitis [Recovered/Resolved]

NARRATIVE: CASE EVENT DATE: 20210709
